FAERS Safety Report 5622153-X (Version None)
Quarter: 2008Q1

REPORT INFORMATION
  Report Type: 
  Country: None (occurrence: None)
  Receive Date: 20080211
  Receipt Date: 20080128
  Transmission Date: 20080703
  Serious: Yes (Other)
  Sender: FDA-Public Use
  Company Number: GB-RANBAXY-2008RR-12809

PATIENT

DRUGS (2)
  1. CODEINE SUL TAB [Suspect]
  2. ACETAMINOPHEN [Suspect]
     Indication: ARTHRALGIA
     Dosage: 6 G, UNK

REACTIONS (1)
  - HEPATIC CIRRHOSIS [None]
